FAERS Safety Report 4368521-8 (Version None)
Quarter: 2004Q2

REPORT INFORMATION
  Report Type: 
  Country: None (occurrence: None)
  Receive Date: 20040528
  Receipt Date: 20040517
  Transmission Date: 20050107
  Serious: Yes (Death, Hospitalization)
  Sender: FDA-Public Use
  Company Number: HQWYE934617MAY04

PATIENT
  Age: 43 Year
  Sex: Female

DRUGS (4)
  1. CORDARONE [Suspect]
     Indication: VENTRICULAR FIBRILLATION
     Dosage: 100 MG 1X PER 1 DAY; ORAL
     Route: 048
     Dates: start: 20001201, end: 20031101
  2. CAPOTEN [Suspect]
     Indication: ACUTE MYOCARDIAL INFARCTION
     Dosage: 75 MG (UNSPECIFIED); ORAL
     Route: 048
     Dates: start: 20000101
  3. LIPITOR [Concomitant]
  4. OMAOR (OMEGA-3 MARINE TRIGLYCERIDES) [Concomitant]

REACTIONS (3)
  - CARDIAC ARREST [None]
  - HYPERTHYROIDISM [None]
  - TACHYCARDIA [None]
